FAERS Safety Report 8445248-4 (Version None)
Quarter: 2012Q2

REPORT INFORMATION
  Report Type: 
  Country: None (occurrence: None)
  Receive Date: 20120605
  Receipt Date: 20120528
  Transmission Date: 20120825
  Serious: Yes (Other)
  Sender: FDA-Public Use
  Company Number: WAES 1202USA02819

PATIENT
  Age: 80 Year
  Sex: Male

DRUGS (1)
  1. ZOLINZA [Suspect]
     Indication: MYCOSIS FUNGOIDES
     Dosage: 300 MG/DAILY, PO;
     Route: 048

REACTIONS (2)
  - DISEASE PROGRESSION [None]
  - MYCOSIS FUNGOIDES [None]
